FAERS Safety Report 4444267-2 (Version None)
Quarter: 2004Q3

REPORT INFORMATION
  Report Type: 
  Country: None (occurrence: None)
  Receive Date: 20040902
  Receipt Date: 20040818
  Transmission Date: 20050211
  Serious: Yes (Hospitalization, Other)
  Sender: FDA-Public Use
  Company Number: USA040875917

PATIENT
  Age: 46 Year
  Sex: Female
  Weight: 105 kg

DRUGS (2)
  1. HUMALOG [Suspect]
     Indication: DIABETES MELLITUS
     Dates: start: 19970101
  2. HUMULIN N [Suspect]
     Indication: DIABETES MELLITUS
     Dosage: 66 U/2 DAY
     Dates: start: 19850101

REACTIONS (9)
  - ANKLE FRACTURE [None]
  - BONE INFECTION [None]
  - CAESAREAN SECTION [None]
  - CATARACT [None]
  - COMPLICATIONS OF MATERNAL EXPOSURE TO THERAPEUTIC DRUGS [None]
  - IMPAIRED GASTRIC EMPTYING [None]
  - NASOPHARYNGITIS [None]
  - SCRATCH [None]
  - WEIGHT DECREASED [None]
